FAERS Safety Report 16776826 (Version 2)
Quarter: 2019Q4

REPORT INFORMATION
  Report Type: Spontaneous
  Country: US (occurrence: US)
  Receive Date: 20190905
  Receipt Date: 20191004
  Transmission Date: 20200122
  Serious: Yes (Other)
  Sender: FDA-Public Use
  Company Number: US-AKORN PHARMACEUTICALS-2019AKN01804

PATIENT
  Sex: Male
  Weight: 61.22 kg

DRUGS (2)
  1. MYORISAN [Suspect]
     Active Substance: ISOTRETINOIN
     Indication: ACNE
     Dosage: 30 MG, 2X/DAY
     Route: 048
     Dates: start: 20190719, end: 20190815
  2. MYORISAN [Suspect]
     Active Substance: ISOTRETINOIN
     Indication: ACNE
     Dosage: 20 MG, 2X/DAY
     Route: 048
     Dates: start: 20190611, end: 201907

REACTIONS (10)
  - Sensitive skin [Recovered/Resolved]
  - Nasal dryness [Recovered/Resolved]
  - Asthenia [Unknown]
  - Depressed mood [Recovered/Resolved]
  - Apathy [Recovered/Resolved]
  - Epistaxis [Recovered/Resolved]
  - Arthralgia [Unknown]
  - Lip dry [Recovered/Resolved]
  - Feeling abnormal [Recovered/Resolved]
  - Dry skin [Recovered/Resolved]

NARRATIVE: CASE EVENT DATE: 2019
